FAERS Safety Report 23378868 (Version 1)
Quarter: 2024Q1

REPORT INFORMATION
  Report Type: Report from Study
  Country: US (occurrence: US)
  Receive Date: 20240108
  Receipt Date: 20240108
  Transmission Date: 20240410
  Serious: Yes (Other)
  Sender: FDA-Public Use
  Company Number: US-PFIZER INC-PV202300209986

PATIENT
  Age: 41 Year
  Sex: Female

DRUGS (15)
  1. VISTARIL [Suspect]
     Active Substance: HYDROXYZINE PAMOATE
     Dosage: UNK
     Route: 048
  2. REMODULIN [Suspect]
     Active Substance: TREPROSTINIL
     Indication: Pulmonary arterial hypertension
     Dosage: 0.00556 UG/KG (CONCENTRATION OF 1.0 MG/ML)
     Route: 058
     Dates: start: 202309
  3. REMODULIN [Suspect]
     Active Substance: TREPROSTINIL
     Dosage: 0.00972 UG/KG (CONCENTRATION OF 2.5 MG/ML)
     Route: 058
     Dates: start: 2023
  4. REMODULIN [Suspect]
     Active Substance: TREPROSTINIL
     Dosage: 0.03472 UG/KG (CONCENTRATION 5 MG/ML)
     Route: 058
     Dates: start: 2023
  5. REMODULIN [Suspect]
     Active Substance: TREPROSTINIL
     Dosage: 0.00764 UG/KG (CONCENTRATION OF 1.0 MG/ML)
     Route: 058
     Dates: start: 202309
  6. REMODULIN [Suspect]
     Active Substance: TREPROSTINIL
     Dosage: UNK (CONCENTRATION OF 1.0 MG/ML)
     Route: 058
     Dates: start: 202309, end: 202309
  7. REMODULIN [Suspect]
     Active Substance: TREPROSTINIL
     Dosage: 0.02604 UG/KG (CONCENTRATION OF 2.5 MG/ML)
     Route: 058
     Dates: start: 2023
  8. REMODULIN [Suspect]
     Active Substance: TREPROSTINIL
     Dosage: 0.02951 UG/KG (CONCENTRATION 2.5 MG/ML)
     Route: 058
     Dates: start: 2023
  9. REMODULIN [Suspect]
     Active Substance: TREPROSTINIL
     Dosage: 0.03125 UG/KG (CONCENTRATION 2.5 MG/ML)
     Route: 058
     Dates: start: 2023
  10. REMODULIN [Suspect]
     Active Substance: TREPROSTINIL
     Dosage: UNK (CONCENTRATION OF 2.5 MG/ML)
     Route: 058
     Dates: start: 2023
  11. REMODULIN [Suspect]
     Active Substance: TREPROSTINIL
     Dosage: UNK (CONCENTRATION OF 5 MG/ML)
     Route: 058
     Dates: start: 2023
  12. UPTRAVI [Concomitant]
     Active Substance: SELEXIPAG
     Dosage: 2000 MCG BID TAKING 2- 200MCG AND 1- 1600MCG
  13. OPSUMIT [Concomitant]
     Active Substance: MACITENTAN
     Dosage: UNK
  14. MYCOPHENOLIC ACID [Concomitant]
     Active Substance: MYCOPHENOLIC ACID
     Dosage: UNK
  15. ADEMPAS [Concomitant]
     Active Substance: RIOCIGUAT
     Dosage: UNK

REACTIONS (15)
  - Infusion site pain [Not Recovered/Not Resolved]
  - Infusion site pruritus [Not Recovered/Not Resolved]
  - Infusion site rash [Not Recovered/Not Resolved]
  - Infusion site discharge [Unknown]
  - Infusion site vesicles [Unknown]
  - Infusion site swelling [Not Recovered/Not Resolved]
  - Infusion site warmth [Unknown]
  - Erythema [Unknown]
  - Abdominal distension [Unknown]
  - Headache [Unknown]
  - Nausea [Recovering/Resolving]
  - Sensitive skin [Unknown]
  - Dermatitis contact [Unknown]
  - Drug intolerance [Unknown]
  - Therapy non-responder [Unknown]

NARRATIVE: CASE EVENT DATE: 20230101
